FAERS Safety Report 6948638-1 (Version None)
Quarter: 2010Q3

REPORT INFORMATION
  Report Type: 
  Country: None (occurrence: None)
  Receive Date: 20100828
  Receipt Date: 20091106
  Transmission Date: 20110219
  Serious: No
  Sender: FDA-Public Use
  Company Number: US-ABBOTT-09P-163-0607699-00

PATIENT
  Sex: Female
  Weight: 88.53 kg

DRUGS (5)
  1. NIASPAN [Suspect]
     Indication: HYPERCHOLESTEROLAEMIA
     Dates: start: 20090901, end: 20091104
  2. GLIPIZIDE [Concomitant]
     Indication: DIABETES MELLITUS
  3. PLAVIX [Concomitant]
     Indication: CORONARY ARTERY BYPASS
  4. CARVEDILOL [Concomitant]
     Indication: CORONARY ARTERY BYPASS
  5. CARVEDILOL [Concomitant]
     Indication: BLOOD PRESSURE

REACTIONS (4)
  - BALANCE DISORDER [None]
  - BLOOD CREATININE INCREASED [None]
  - BLOOD PRESSURE SYSTOLIC INCREASED [None]
  - DIZZINESS [None]
